FAERS Safety Report 7152743-7 (Version None)
Quarter: 2010Q4

REPORT INFORMATION
  Report Type: 
  Country: None (occurrence: None)
  Receive Date: 20101213
  Receipt Date: 20101203
  Transmission Date: 20110411
  Serious: Yes (Other)
  Sender: FDA-Public Use
  Company Number: HU-JNJFOC-20101203365

PATIENT
  Sex: Female

DRUGS (1)
  1. VERMOX [Suspect]
     Indication: NEMATODIASIS
     Route: 048

REACTIONS (2)
  - DRUG EXPOSURE DURING PREGNANCY [None]
  - PROLONGED PREGNANCY [None]
